FAERS Safety Report 21329885 (Version 1)
Quarter: 2022Q3

REPORT INFORMATION
  Report Type: Spontaneous
  Country: US (occurrence: None)
  Receive Date: 20220913
  Receipt Date: 20220913
  Transmission Date: 20221026
  Serious: Yes (Disabling)
  Sender: FDA-Public Use
  Company Number: None

PATIENT
  Age: 82 Year
  Sex: Female
  Weight: 74.25 kg

DRUGS (15)
  1. CHLORHEXIDINE [Suspect]
     Active Substance: CHLORHEXIDINE
     Indication: Preoperative care
     Route: 061
     Dates: start: 20220609, end: 20220609
  2. CHLORHEXIDINE [Suspect]
     Active Substance: CHLORHEXIDINE
     Indication: Infection prophylaxis
  3. AVAPRO [Concomitant]
     Active Substance: IRBESARTAN
  4. HYDROCHLOROTHIAZIDE [Concomitant]
     Active Substance: HYDROCHLOROTHIAZIDE
  5. MELOXICAM [Concomitant]
     Active Substance: MELOXICAM
  6. SIMVASTATIN [Concomitant]
     Active Substance: SIMVASTATIN
  7. ASPIRIN [Concomitant]
     Active Substance: ASPIRIN
  8. PRILOSEC [Concomitant]
     Active Substance: OMEPRAZOLE MAGNESIUM
  9. TIZANIDINE [Concomitant]
     Active Substance: TIZANIDINE
  10. TRAMADOL [Concomitant]
     Active Substance: TRAMADOL
  11. LATANOPROST [Concomitant]
     Active Substance: LATANOPROST
  12. VITAMIN D [Concomitant]
     Active Substance: VITAMIN D NOS
  13. VITAMIN B2 [Concomitant]
     Active Substance: RIBOFLAVIN
  14. POTASSIUM [Concomitant]
  15. VITAMIN 12 [Concomitant]

REACTIONS (10)
  - Post procedural complication [None]
  - Oedema peripheral [None]
  - Erythema [None]
  - Burning sensation [None]
  - Pain in extremity [None]
  - Blister [None]
  - Skin exfoliation [None]
  - Fracture blisters [None]
  - Nerve injury [None]
  - Application site reaction [None]

NARRATIVE: CASE EVENT DATE: 20220609
